FAERS Safety Report 14250658 (Version 1)
Quarter: 2017Q4

REPORT INFORMATION
  Report Type: Spontaneous
  Country: US (occurrence: US)
  Receive Date: 20171205
  Receipt Date: 20171205
  Transmission Date: 20180321
  Serious: No
  Sender: FDA-Public Use
  Company Number: US-ENDO PHARMACEUTICALS INC-2017-004750

PATIENT
  Sex: Female
  Weight: 58.97 kg

DRUGS (2)
  1. ALPRAZOLAM TABLETS [Suspect]
     Active Substance: ALPRAZOLAM
     Indication: NERVOUSNESS
  2. ALPRAZOLAM TABLETS [Suspect]
     Active Substance: ALPRAZOLAM
     Indication: PANIC ATTACK
     Dosage: UNK UNK, UNKNOWN
     Route: 065

REACTIONS (1)
  - Malaise [Unknown]
